FAERS Safety Report 7399456-4 (Version None)
Quarter: 2011Q2

REPORT INFORMATION
  Report Type: 
  Country: None (occurrence: None)
  Receive Date: 20110407
  Receipt Date: 20110328
  Transmission Date: 20111010
  Serious: Yes (Other)
  Sender: FDA-Public Use
  Company Number: PHHY2011DE25822

PATIENT
  Sex: Male

DRUGS (1)
  1. RITALIN [Suspect]
     Indication: ATYPICAL ATTENTION DEFICIT SYNDROME
     Dates: start: 20050101, end: 20070101

REACTIONS (2)
  - HEADACHE [None]
  - EPILEPSY [None]
